FAERS Safety Report 6611968-7 (Version None)
Quarter: 2010Q1

REPORT INFORMATION
  Report Type: 
  Country: None (occurrence: None)
  Receive Date: 20100219
  Receipt Date: 20100217
  Transmission Date: 20100710
  Serious: Yes (Hospitalization)
  Sender: FDA-Public Use
  Company Number: 2010-00251

PATIENT
  Age: 60 Year
  Sex: Male
  Weight: 109.7705 kg

DRUGS (1)
  1. ZICAM EXTREME CONGESTION NASAL GEL [Suspect]
     Indication: NASAL CONGESTION

REACTIONS (3)
  - DYSPNOEA [None]
  - PHARYNGEAL OEDEMA [None]
  - SPEECH DISORDER [None]
